FAERS Safety Report 14290140 (Version 1)
Quarter: 2017Q4

REPORT INFORMATION
  Report Type: Spontaneous
  Country: US (occurrence: None)
  Receive Date: 20171215
  Receipt Date: 20171215
  Transmission Date: 20180321
  Serious: No
  Sender: FDA-Public Use
  Company Number: None

PATIENT
  Age: 26 Year
  Sex: Male

DRUGS (2)
  1. LAMOTRIGINE 100MG [Suspect]
     Active Substance: LAMOTRIGINE
  2. LABETALOL 100 MG [Suspect]
     Active Substance: LABETALOL HYDROCHLORIDE

REACTIONS (3)
  - Product packaging confusion [None]
  - Product name confusion [None]
  - Product label confusion [None]
